FAERS Safety Report 10274499 (Version 1)
Quarter: 2014Q3

REPORT INFORMATION
  Report Type: Spontaneous
  Country: US (occurrence: US)
  Receive Date: 20140702
  Receipt Date: 20140702
  Transmission Date: 20150326
  Serious: Yes (Hospitalization, Other)
  Sender: FDA-Public Use
  Company Number: US-PFIZER INC-2014182509

PATIENT
  Age: 69 Year
  Sex: Female
  Weight: 54.42 kg

DRUGS (1)
  1. LIPITOR [Suspect]
     Active Substance: ATORVASTATIN CALCIUM
     Indication: BLOOD CHOLESTEROL INCREASED
     Dosage: UNK, ONCE A DAY
     Route: 048
     Dates: start: 2007, end: 2013

REACTIONS (5)
  - Activities of daily living impaired [Unknown]
  - Myocardial infarction [Unknown]
  - Cardiac disorder [Unknown]
  - Diabetes mellitus [Unknown]
  - Drug intolerance [Unknown]

NARRATIVE: CASE EVENT DATE: 201007
